FAERS Safety Report 20405369 (Version 23)
Quarter: 2025Q1

REPORT INFORMATION
  Report Type: Spontaneous
  Country: IN (occurrence: IN)
  Receive Date: 20220131
  Receipt Date: 20250114
  Transmission Date: 20250409
  Serious: Yes (Hospitalization, Other)
  Sender: PFIZER
  Company Number: IN-PFIZER INC-2020412633

PATIENT
  Age: 59 Year
  Sex: Female
  Weight: 72 kg

DRUGS (6)
  1. PALBOCICLIB [Suspect]
     Active Substance: PALBOCICLIB
     Indication: Breast cancer metastatic
     Route: 048
     Dates: start: 20190810
  2. LETROZOLE [Concomitant]
     Active Substance: LETROZOLE
     Indication: Breast cancer metastatic
     Dosage: 2.5 MG, 1X/DAY
     Route: 048
     Dates: start: 201908
  3. GEMCAL [CALCITRIOL;CALCIUM CITRATE] [Concomitant]
     Dosage: UNK, 1X/DAY
  4. FEBUXOSTAT [Concomitant]
     Active Substance: FEBUXOSTAT
     Dosage: 40 MG, 1X/DAY
  5. SHELCAL-OS [Concomitant]
     Dosage: 1 DF, 1X/DAY
     Route: 048
  6. CALCIROL [COLECALCIFEROL] [Concomitant]
     Dosage: 60000 IU, MONTHLY
     Route: 048

REACTIONS (17)
  - COVID-19 [Unknown]
  - Renal impairment [Not Recovered/Not Resolved]
  - Haemoglobin decreased [Not Recovered/Not Resolved]
  - Neutrophil count decreased [Not Recovered/Not Resolved]
  - White blood cell count decreased [Not Recovered/Not Resolved]
  - Blood albumin decreased [Unknown]
  - Macrocytosis [Unknown]
  - Blood creatinine increased [Unknown]
  - Full blood count abnormal [Unknown]
  - Liver function test abnormal [Not Recovered/Not Resolved]
  - Breast pain [Unknown]
  - Blood uric acid increased [Unknown]
  - Joint stiffness [Recovered/Resolved]
  - Blood urea increased [Unknown]
  - Blood thyroid stimulating hormone increased [Unknown]
  - Blood sodium decreased [Recovered/Resolved]
  - Neoplasm progression [Unknown]

NARRATIVE: CASE EVENT DATE: 20191001
